FAERS Safety Report 9531389 (Version 1)
Quarter: 2013Q3

REPORT INFORMATION
  Report Type: Spontaneous
  Country: US (occurrence: None)
  Receive Date: 20130916
  Receipt Date: 20130916
  Transmission Date: 20140515
  Serious: Yes (Disabling)
  Sender: FDA-Public Use
  Company Number: None

PATIENT
  Age: 39 Year
  Sex: Female
  Weight: 52.16 kg

DRUGS (1)
  1. DYSPORT [Suspect]
     Indication: SKIN WRINKLING
     Dates: start: 20130726

REACTIONS (12)
  - Paraesthesia [None]
  - Muscle twitching [None]
  - Tension headache [None]
  - Muscle spasms [None]
  - Blood pressure increased [None]
  - Tachycardia [None]
  - Abdominal discomfort [None]
  - Nausea [None]
  - Decreased appetite [None]
  - Emotional distress [None]
  - Anxiety [None]
  - Depression [None]
